FAERS Safety Report 10217214 (Version 1)
Quarter: 2014Q2

REPORT INFORMATION
  Report Type: Spontaneous
  Country: IT (occurrence: IT)
  Receive Date: 20140604
  Receipt Date: 20140604
  Transmission Date: 20141212
  Serious: Yes (Death, Hospitalization, Other)
  Sender: FDA-Public Use
  Company Number: IT-ACTAVIS-2014-12047

PATIENT
  Sex: Male
  Weight: 75 kg

DRUGS (2)
  1. TRAMADOL (UNKNOWN) [Suspect]
     Indication: PRODUCT USED FOR UNKNOWN INDICATION
     Dosage: UNK
     Route: 042
  2. PROPOFOL [Suspect]
     Indication: PRODUCT USED FOR UNKNOWN INDICATION
     Dosage: UNK
     Route: 042

REACTIONS (7)
  - Cardiac arrest [Fatal]
  - Acute respiratory failure [Fatal]
  - Toxicity to various agents [Fatal]
  - Overdose [Fatal]
  - Drug abuse [Fatal]
  - Atrial fibrillation [Not Recovered/Not Resolved]
  - Acidosis [Not Recovered/Not Resolved]
